FAERS Safety Report 19485715 (Version 3)
Quarter: 2022Q3

REPORT INFORMATION
  Report Type: Spontaneous
  Country: DE (occurrence: DE)
  Receive Date: 20210702
  Receipt Date: 20220913
  Transmission Date: 20221026
  Serious: Yes (Hospitalization, Other)
  Sender: FDA-Public Use
  Company Number: DE-ALKEM LABORATORIES LIMITED-DE-ALKEM-2021-03912

PATIENT
  Age: 39 Year
  Sex: Female
  Weight: 70 kg

DRUGS (27)
  1. PREGABALIN [Suspect]
     Active Substance: PREGABALIN
     Indication: Pain
     Dosage: 125 MILLIGRAM, QD (EVERY 1 DAY)
     Route: 048
  2. PREGABALIN [Suspect]
     Active Substance: PREGABALIN
     Dosage: 50 MILLIGRAM
     Route: 048
  3. PREGABALIN [Suspect]
     Active Substance: PREGABALIN
     Dosage: 100 MILLIGRAM
     Route: 048
     Dates: start: 2019, end: 2019
  4. PREGABALIN [Suspect]
     Active Substance: PREGABALIN
     Dosage: 250 MILLIGRAM, QD
     Route: 048
  5. PREGABALIN [Suspect]
     Active Substance: PREGABALIN
     Dosage: 200 MILLIGRAM, QD (EVERY 1 DAY)
     Route: 048
     Dates: start: 20190308
  6. PREGABALIN [Suspect]
     Active Substance: PREGABALIN
     Dosage: 100 MILLIGRAM, QD (EVERY 1 DAY)
     Route: 048
     Dates: start: 2019
  7. OCREVUS [Suspect]
     Active Substance: OCRELIZUMAB
     Indication: Relapsing-remitting multiple sclerosis
     Dosage: 300 MILLIGRAM
     Route: 042
     Dates: start: 20180522
  8. OCREVUS [Suspect]
     Active Substance: OCRELIZUMAB
     Dosage: 600 MILLIGRAM (EVERY 6 MONTHS)
     Route: 042
     Dates: start: 20181126
  9. OCREVUS [Suspect]
     Active Substance: OCRELIZUMAB
     Dosage: 600 MILLIGRAM (EVERY 6 MONTHS)
     Route: 042
     Dates: start: 20190605
  10. OCREVUS [Suspect]
     Active Substance: OCRELIZUMAB
     Dosage: 300 MILLIGRAM
     Route: 042
     Dates: start: 20180508, end: 201805
  11. OCREVUS [Suspect]
     Active Substance: OCRELIZUMAB
     Dosage: UNK (EVERY 199 DAYS)
     Route: 042
     Dates: start: 20210604
  12. OCREVUS [Suspect]
     Active Substance: OCRELIZUMAB
     Dosage: UNK
     Route: 042
     Dates: start: 202006
  13. OCREVUS [Suspect]
     Active Substance: OCRELIZUMAB
     Dosage: 600 MILLIGRAM (EVERY 6 MONTHS)
     Route: 065
     Dates: start: 20181126
  14. OCREVUS [Suspect]
     Active Substance: OCRELIZUMAB
     Dosage: 600 MILLIGRAM
     Route: 065
     Dates: start: 20180518
  15. OCREVUS [Suspect]
     Active Substance: OCRELIZUMAB
     Dosage: UNK
     Route: 065
     Dates: start: 20190506
  16. COMIRNATY [Suspect]
     Active Substance: TOZINAMERAN
     Indication: Product used for unknown indication
     Dosage: UNK
     Route: 065
  17. BACLOFEN [Concomitant]
     Active Substance: BACLOFEN
     Indication: Muscle spasticity
     Dosage: 10 MILLIGRAM, QD (EVERY 1 DAY)
     Route: 065
  18. CARVEDILOL [Concomitant]
     Active Substance: CARVEDILOL
     Indication: Hypertension
     Dosage: 6.25 MILLIGRAM, QD
     Route: 065
  19. CARVEDILOL [Concomitant]
     Active Substance: CARVEDILOL
     Dosage: 12.5 MILLIGRAM, QD
     Route: 048
  20. CARVEDILOL [Concomitant]
     Active Substance: CARVEDILOL
     Dosage: 12.5 MILLIGRAM, QD (EVERY 1 DAY)
     Route: 065
  21. LEVOTHYROXINE [Concomitant]
     Active Substance: LEVOTHYROXINE
     Indication: Hypothyroidism
     Dosage: 25 MICROGRAM, QD
     Route: 048
  22. LEVOTHYROXINE [Concomitant]
     Active Substance: LEVOTHYROXINE
     Dosage: 25 MICROGRAM, QD
     Route: 065
  23. NORSPAN [Concomitant]
     Active Substance: BUPRENORPHINE
     Indication: Pain
     Dosage: 2.5 MICROGRAM, ONCE WEEKLY
     Route: 062
  24. NORSPAN [Concomitant]
     Active Substance: BUPRENORPHINE
     Dosage: 2.5 MICROGRAM, ONCE WEEKLY
     Route: 065
  25. OXCARBAZEPINE [Concomitant]
     Active Substance: OXCARBAZEPINE
     Indication: Trigeminal neuralgia
     Dosage: 150 MILLIGRAM (EVERY 0.5 DAY)
     Route: 065
  26. OXCARBAZEPINE [Concomitant]
     Active Substance: OXCARBAZEPINE
     Indication: Pain
     Dosage: 250 MILLIGRAM
     Route: 065
  27. Paracodin [Concomitant]
     Indication: Product used for unknown indication
     Dosage: UNK
     Route: 065

REACTIONS (52)
  - Ovarian adenoma [Recovered/Resolved]
  - Trigeminal neuralgia [Recovered/Resolved]
  - Mitral valve incompetence [Not Recovered/Not Resolved]
  - Abscess [Recovered/Resolved]
  - Paralysis [Recovered/Resolved]
  - Atrioventricular block [Unknown]
  - Pulpitis dental [Recovered/Resolved]
  - Lipoedema [Not Recovered/Not Resolved]
  - Automatic bladder [Recovered/Resolved]
  - Oedema [Not Recovered/Not Resolved]
  - Neurodermatitis [Recovered/Resolved]
  - Multiple sclerosis relapse [Not Recovered/Not Resolved]
  - Multiple sclerosis [Not Recovered/Not Resolved]
  - Drug ineffective [Unknown]
  - Lymphocyte count decreased [Unknown]
  - Bladder disorder [Not Recovered/Not Resolved]
  - Back pain [Not Recovered/Not Resolved]
  - Vascular calcification [Not Recovered/Not Resolved]
  - Chest pain [Not Recovered/Not Resolved]
  - Gait disturbance [Recovering/Resolving]
  - Hypotension [Not Recovered/Not Resolved]
  - Musculoskeletal chest pain [Not Recovered/Not Resolved]
  - Fatigue [Recovered/Resolved]
  - Eosinophilic oesophagitis [Not Recovered/Not Resolved]
  - Renal cyst [Not Recovered/Not Resolved]
  - Sensory disturbance [Not Recovered/Not Resolved]
  - Tooth dislocation [Not Recovered/Not Resolved]
  - Hordeolum [Recovering/Resolving]
  - Abdominal pain upper [Recovered/Resolved]
  - Lymphoedema [Not Recovered/Not Resolved]
  - Auditory disorder [Recovered/Resolved]
  - Neutrophil count increased [Recovered/Resolved]
  - SARS-CoV-2 antibody test negative [Not Recovered/Not Resolved]
  - Blood cholesterol increased [Recovering/Resolving]
  - Fluid retention [Not Recovered/Not Resolved]
  - Dental fistula [Recovered/Resolved]
  - Dysuria [Recovered/Resolved]
  - Weight increased [Recovered/Resolved]
  - Nausea [Recovered/Resolved]
  - Eczema [Recovered/Resolved]
  - Hypersensitivity [Recovered/Resolved]
  - Abscess oral [Recovered/Resolved]
  - Fatigue [Recovered/Resolved]
  - Menstruation delayed [Recovered/Resolved]
  - Neuralgia [Recovered/Resolved]
  - Asthenia [Recovered/Resolved]
  - Agitation [Recovered/Resolved]
  - Skin papilloma [Recovered/Resolved]
  - Tooth fracture [Recovered/Resolved]
  - Blood blister [Recovered/Resolved]
  - Vocal cord inflammation [Recovered/Resolved]
  - Viral titre decreased [Recovered/Resolved]

NARRATIVE: CASE EVENT DATE: 20180508
